FAERS Safety Report 6983358-9 (Version None)
Quarter: 2010Q3

REPORT INFORMATION
  Report Type: 
  Country: None (occurrence: None)
  Receive Date: 20100914
  Receipt Date: 20100901
  Transmission Date: 20110219
  Serious: Yes (Hospitalization)
  Sender: FDA-Public Use
  Company Number: PHHY2010US58482

PATIENT
  Sex: Female

DRUGS (1)
  1. EXFORGE [Suspect]
     Route: 048

REACTIONS (2)
  - MULTIPLE SCLEROSIS [None]
  - MUSCULAR WEAKNESS [None]
